FAERS Safety Report 4301157-3 (Version None)
Quarter: 2004Q1

REPORT INFORMATION
  Report Type: 
  Country: None (occurrence: None)
  Receive Date: 20040218
  Receipt Date: 20031031
  Transmission Date: 20041129
  Serious: No
  Sender: FDA-Public Use
  Company Number: 2003-10-3314

PATIENT
  Age: 49 Year
  Sex: Male
  Weight: 94.3482 kg

DRUGS (5)
  1. PEG-INTRON [Suspect]
     Indication: HEPATITIS C
     Dosage: 150-300 MCG SUBCUTANEOUS
     Route: 058
     Dates: start: 20030307, end: 20031023
  2. PEG-INTRON [Suspect]
     Indication: HEPATITIS C
     Dosage: 150-300 MCG SUBCUTANEOUS
     Route: 058
     Dates: start: 20030814, end: 20031023
  3. REBETOL [Suspect]
     Indication: HEPATITIS C
     Dosage: ALT-1600 ORAL; 1400 MG QOD
     Route: 048
     Dates: start: 20030307, end: 20030814
  4. REBETOL [Suspect]
     Indication: HEPATITIS C
     Dosage: ALT-1600 ORAL; 1400 MG QOD
     Route: 048
     Dates: start: 20030307, end: 20031023
  5. REBETOL [Suspect]
     Indication: HEPATITIS C
     Dosage: ALT-1600 ORAL; 1400 MG QOD
     Route: 048
     Dates: start: 20030814, end: 20031023

REACTIONS (1)
  - THERAPEUTIC RESPONSE DECREASED [None]
